FAERS Safety Report 5873876-9 (Version None)
Quarter: 2008Q3

REPORT INFORMATION
  Report Type: 
  Country: None (occurrence: None)
  Receive Date: 20080903
  Receipt Date: 20080903
  Transmission Date: 20090109
  Serious: Yes (Other)
  Sender: FDA-Public Use
  Company Number: None

PATIENT
  Age: 40 Year
  Sex: Female
  Weight: 63.5036 kg

DRUGS (4)
  1. ZYRTEC [Suspect]
     Indication: HYPERSENSITIVITY
     Dosage: 10 MG 1 DAILY PO
     Route: 048
     Dates: start: 19970901, end: 20080330
  2. ZYRTEC [Suspect]
     Indication: URTICARIA
     Dosage: 10 MG 1 DAILY PO
     Route: 048
     Dates: start: 19970901, end: 20080330
  3. CITIRIZINE HYDROCHLORIDE [Suspect]
     Indication: HYPERSENSITIVITY
     Dosage: 5 MG 1 DAILY PO
     Route: 048
     Dates: start: 20080330, end: 20080630
  4. CITIRIZINE HYDROCHLORIDE [Suspect]
     Indication: URTICARIA
     Dosage: 5 MG 1 DAILY PO
     Route: 048
     Dates: start: 20080330, end: 20080630

REACTIONS (23)
  - BURNING SENSATION [None]
  - DIZZINESS [None]
  - DYSPNOEA [None]
  - EAR PRURITUS [None]
  - EYE PRURITUS [None]
  - EYE SWELLING [None]
  - FATIGUE [None]
  - FLUSHING [None]
  - FORMICATION [None]
  - HYPERAESTHESIA [None]
  - INSOMNIA [None]
  - NAUSEA [None]
  - OEDEMA PERIPHERAL [None]
  - PALPITATIONS [None]
  - PRURITUS [None]
  - PRURITUS GENERALISED [None]
  - PRURITUS GENITAL [None]
  - RASH [None]
  - STRESS [None]
  - URINARY INCONTINENCE [None]
  - URTICARIA [None]
  - WEIGHT INCREASED [None]
  - WITHDRAWAL SYNDROME [None]
